FAERS Safety Report 22061776 (Version 1)
Quarter: 2023Q1

REPORT INFORMATION
  Report Type: Report from Study
  Country: CO (occurrence: CO)
  Receive Date: 20230304
  Receipt Date: 20230304
  Transmission Date: 20230417
  Serious: Yes (Hospitalization)
  Sender: FDA-Public Use
  Company Number: CO-ABBVIE-4256528

PATIENT
  Sex: Male
  Weight: 90 kg

DRUGS (1)
  1. HUMIRA [Suspect]
     Active Substance: ADALIMUMAB
     Indication: Crohn^s disease
     Route: 058
     Dates: start: 20200418

REACTIONS (10)
  - Joint swelling [Recovered/Resolved]
  - Arthralgia [Recovering/Resolving]
  - Arthritis [Unknown]
  - Walking disability [Recovered/Resolved]
  - Arthralgia [Recovered/Resolved]
  - Idiosyncratic drug reaction [Recovering/Resolving]
  - Abdominal distension [Recovering/Resolving]
  - Food intolerance [Recovering/Resolving]
  - Mobility decreased [Recovered/Resolved]
  - Pain [Unknown]

NARRATIVE: CASE EVENT DATE: 20220101
